FAERS Safety Report 12692466 (Version 3)
Quarter: 2020Q3

REPORT INFORMATION
  Report Type: Report from Study
  Country: JP (occurrence: JP)
  Receive Date: 20160829
  Receipt Date: 20161214
  Transmission Date: 20201104
  Serious: Yes (Other)
  Sender: FDA-Public Use
  Company Number: JP-ROCHE-1820621

PATIENT
  Age: 75 Year
  Sex: Female
  Weight: 49 kg

DRUGS (12)
  1. IBANDRONIC ACID. [Suspect]
     Active Substance: IBANDRONIC ACID
     Indication: OSTEOPOROSIS POSTMENOPAUSAL
     Route: 042
     Dates: start: 20160715, end: 20160715
  2. IBANDRONIC ACID. [Suspect]
     Active Substance: IBANDRONIC ACID
     Indication: OSTEOPOROSIS POSTMENOPAUSAL
     Route: 042
     Dates: start: 20150626, end: 20150626
  3. IBANDRONIC ACID. [Suspect]
     Active Substance: IBANDRONIC ACID
     Indication: OSTEOPOROSIS POSTMENOPAUSAL
     Route: 042
     Dates: start: 20150803, end: 20150803
  4. IBANDRONIC ACID. [Suspect]
     Active Substance: IBANDRONIC ACID
     Indication: OSTEOPOROSIS POSTMENOPAUSAL
     Route: 042
     Dates: start: 20151211, end: 20151211
  5. IBANDRONIC ACID. [Suspect]
     Active Substance: IBANDRONIC ACID
     Indication: OSTEOPOROSIS POSTMENOPAUSAL
     Route: 042
     Dates: start: 20160212, end: 20160212
  6. IBANDRONIC ACID. [Suspect]
     Active Substance: IBANDRONIC ACID
     Indication: OSTEOPOROSIS POSTMENOPAUSAL
     Route: 042
     Dates: start: 20160819, end: 20160819
  7. IBANDRONIC ACID. [Suspect]
     Active Substance: IBANDRONIC ACID
     Indication: OSTEOPOROSIS POSTMENOPAUSAL
     Route: 042
     Dates: start: 20160422, end: 20160422
  8. IBANDRONIC ACID. [Suspect]
     Active Substance: IBANDRONIC ACID
     Indication: OSTEOPOROSIS POSTMENOPAUSAL
     Route: 042
     Dates: start: 20160108, end: 20160108
  9. IBANDRONIC ACID. [Suspect]
     Active Substance: IBANDRONIC ACID
     Indication: OSTEOPOROSIS POSTMENOPAUSAL
     Route: 042
     Dates: start: 20160318, end: 20160318
  10. IBANDRONIC ACID. [Suspect]
     Active Substance: IBANDRONIC ACID
     Indication: OSTEOPOROSIS POSTMENOPAUSAL
     Route: 042
     Dates: start: 20151023, end: 20151023
  11. IBANDRONIC ACID. [Suspect]
     Active Substance: IBANDRONIC ACID
     Indication: OSTEOPOROSIS POSTMENOPAUSAL
     Route: 042
     Dates: start: 20160617, end: 20160617
  12. IBANDRONIC ACID. [Suspect]
     Active Substance: IBANDRONIC ACID
     Indication: OSTEOPOROSIS POSTMENOPAUSAL
     Route: 042
     Dates: start: 20160916

REACTIONS (1)
  - Spinal fracture [Not Recovered/Not Resolved]

NARRATIVE: CASE EVENT DATE: 20160617
